FAERS Safety Report 18286293 (Version 1)
Quarter: 2020Q3

REPORT INFORMATION
  Report Type: Spontaneous
  Country: US (occurrence: US)
  Receive Date: 20200920
  Receipt Date: 20200920
  Transmission Date: 20201103
  Serious: Yes (Other)
  Sender: FDA-Public Use
  Company Number: US-LUPIN PHARMACEUTICALS INC.-2020-05914

PATIENT
  Age: 70 Year
  Sex: Male

DRUGS (1)
  1. VORICONAZOLE. [Suspect]
     Active Substance: VORICONAZOLE
     Indication: DISSEMINATED COCCIDIOIDOMYCOSIS
     Dosage: UNK
     Route: 065

REACTIONS (2)
  - Fluorosis [Recovering/Resolving]
  - Bone lesion [Recovering/Resolving]
